FAERS Safety Report 9278553 (Version 3)
Quarter: 2013Q2

REPORT INFORMATION
  Report Type: Spontaneous
  Country: US (occurrence: US)
  Receive Date: 20130508
  Receipt Date: 20130530
  Transmission Date: 20140414
  Serious: Yes (Hospitalization, Other)
  Sender: FDA-Public Use
  Company Number: US-TEVA-402999USA

PATIENT
  Sex: Female

DRUGS (2)
  1. COPAXONE [Suspect]
     Indication: MULTIPLE SCLEROSIS
     Dates: end: 201302
  2. AVONEX [Suspect]
     Dates: start: 20120404

REACTIONS (4)
  - Renal failure acute [Unknown]
  - Thrombosis [Unknown]
  - Central nervous system lesion [Unknown]
  - Multiple sclerosis [Unknown]
